FAERS Safety Report 5782931-3 (Version None)
Quarter: 2008Q2

REPORT INFORMATION
  Report Type: 
  Country: None (occurrence: None)
  Receive Date: 20080619
  Receipt Date: 20080619
  Transmission Date: 20081010
  Serious: Yes (Death)
  Sender: FDA-Public Use
  Company Number: None

PATIENT
  Age: 81 Year
  Sex: Male
  Weight: 68.0396 kg

DRUGS (1)
  1. DIGITEK  125MCG  BERTEK PHARM [Suspect]
     Dosage: 125MCG ONCE A DAY
     Dates: start: 20071112, end: 20080422

REACTIONS (1)
  - DEATH [None]
